FAERS Safety Report 21528601 (Version 1)
Quarter: 2022Q4

REPORT INFORMATION
  Report Type: Spontaneous
  Country: GB (occurrence: GB)
  Receive Date: 20221031
  Receipt Date: 20221031
  Transmission Date: 20230113
  Serious: Yes (Other)
  Sender: FDA-Public Use
  Company Number: GB-MHRA-MED-202210191229414650-NWDCJ

PATIENT
  Sex: Female

DRUGS (1)
  1. DOTAREM [Suspect]
     Active Substance: GADOTERATE MEGLUMINE
     Indication: Magnetic resonance imaging
     Dosage: 10 (UNIT UNSPECIFIED)
     Route: 065

REACTIONS (5)
  - Dysarthria [Unknown]
  - Pain [Recovered/Resolved]
  - Swelling [Unknown]
  - Dizziness [Unknown]
  - Malaise [Unknown]
